FAERS Safety Report 5284187-7 (Version None)
Quarter: 2007Q1

REPORT INFORMATION
  Report Type: 
  Country: None (occurrence: None)
  Receive Date: 20070328
  Receipt Date: 20070313
  Transmission Date: 20070707
  Serious: Yes (Other)
  Sender: FDA-Public Use
  Company Number: 15968

PATIENT
  Age: 49 Year
  Sex: Male

DRUGS (2)
  1. ETOPOSIDE [Suspect]
     Dosage: 60 MG/KG ONCE
  2. METHOTREXATE [Suspect]
     Dosage: 25 MG/M2 TOTAL

REACTIONS (6)
  - EPIDERMAL NECROSIS [None]
  - RASH ERYTHEMATOUS [None]
  - RASH MACULO-PAPULAR [None]
  - RASH PRURITIC [None]
  - RECALL PHENOMENON [None]
  - WHITE BLOOD CELL COUNT DECREASED [None]
